FAERS Safety Report 11100892 (Version 2)
Quarter: 2015Q2

REPORT INFORMATION
  Report Type: Report from Study
  Country: US (occurrence: US)
  Receive Date: 20150508
  Receipt Date: 20150611
  Transmission Date: 20150821
  Serious: Yes (Death, Other)
  Sender: FDA-Public Use
  Company Number: PHEH2015US008827

PATIENT
  Sex: Male

DRUGS (1)
  1. EXJADE [Suspect]
     Active Substance: DEFERASIROX
     Indication: ACUTE MYELOID LEUKAEMIA
     Dosage: 250 MG, QOD (ON MON, WED AND FRI)
     Route: 048
     Dates: start: 20150401

REACTIONS (3)
  - Infection [Fatal]
  - Hepatic failure [Unknown]
  - Graft versus host disease [Fatal]
